FAERS Safety Report 20336027 (Version 1)
Quarter: 2022Q1

REPORT INFORMATION
  Report Type: Spontaneous
  Country: CA (occurrence: CA)
  Receive Date: 20220114
  Receipt Date: 20220114
  Transmission Date: 20220423
  Serious: Yes (Other)
  Sender: FDA-Public Use
  Company Number: CA-SAMSUNG BIOEPIS-SB-2022-00502

PATIENT
  Age: 39 Year
  Sex: Female
  Weight: 101 kg

DRUGS (1)
  1. INFLIXIMAB [Suspect]
     Active Substance: INFLIXIMAB
     Indication: Psoriatic arthropathy
     Route: 042

REACTIONS (10)
  - Diabetes mellitus [Unknown]
  - Diabetic neuropathy [Unknown]
  - Hypertension [Unknown]
  - Hyperthyroidism [Unknown]
  - Impaired gastric emptying [Unknown]
  - Therapeutic product effect incomplete [Unknown]
  - Inappropriate schedule of product administration [Unknown]
  - Intentional product use issue [Unknown]
  - Off label use [Unknown]
  - Prescribed underdose [Unknown]
